FAERS Safety Report 14877525 (Version 1)
Quarter: 2018Q2

REPORT INFORMATION
  Report Type: Report from Study
  Country: US (occurrence: US)
  Receive Date: 20180510
  Receipt Date: 20180510
  Transmission Date: 20180711
  Serious: Yes (Death, Hospitalization)
  Sender: FDA-Public Use
  Company Number: US-ACTELION-A-US2018-171838

PATIENT
  Age: 68 Year
  Sex: Female
  Weight: 45.81 kg

DRUGS (3)
  1. OXYGEN. [Concomitant]
     Active Substance: OXYGEN
  2. VELETRI [Suspect]
     Active Substance: EPOPROSTENOL
     Indication: PULMONARY ARTERIAL HYPERTENSION
     Route: 042
  3. ADCIRCA [Concomitant]
     Active Substance: TADALAFIL

REACTIONS (6)
  - Fatigue [Unknown]
  - Dependence on oxygen therapy [Unknown]
  - Anuria [Unknown]
  - Death [Fatal]
  - Malaise [Unknown]
  - Dyspnoea [Unknown]

NARRATIVE: CASE EVENT DATE: 20180501
